FAERS Safety Report 25803153 (Version 1)
Quarter: 2025Q3

REPORT INFORMATION
  Report Type: Spontaneous
  Country: TR (occurrence: TR)
  Receive Date: 20250915
  Receipt Date: 20250915
  Transmission Date: 20251021
  Serious: Yes (Other)
  Sender: BAYER HEALTHCARE PHARMACEUTICALS INC.
  Company Number: TR-BAYER-2025A117372

PATIENT
  Age: 11 Year
  Sex: Male

DRUGS (5)
  1. SORAFENIB [Suspect]
     Active Substance: SORAFENIB
     Indication: Medullary thyroid cancer
     Dosage: 100 MG, QD
     Dates: start: 2018
  2. SORAFENIB [Suspect]
     Active Substance: SORAFENIB
     Indication: Gene mutation
     Dosage: 200 MG, QD
  3. SORAFENIB [Suspect]
     Active Substance: SORAFENIB
     Indication: Medullary thyroid cancer
     Dosage: 300 MG, QD
  4. SORAFENIB [Suspect]
     Active Substance: SORAFENIB
     Indication: Medullary thyroid cancer
     Dosage: 400 MG, QD
  5. LEVOTHYROXINE [Concomitant]
     Active Substance: LEVOTHYROXINE

REACTIONS (3)
  - Growth retardation [None]
  - Product use issue [None]
  - Product prescribing issue [None]

NARRATIVE: CASE EVENT DATE: 20180101
